FAERS Safety Report 8672869 (Version 4)
Quarter: 2013Q1

REPORT INFORMATION
  Report Type: Spontaneous
  Country: US (occurrence: US)
  Receive Date: 20120719
  Receipt Date: 20130110
  Transmission Date: 20140127
  Serious: Yes (Hospitalization)
  Sender: FDA-Public Use
  Company Number: US-PFIZER INC-2012171440

PATIENT
  Age: 79 Year
  Sex: Male
  Weight: 104 kg

DRUGS (1)
  1. NEURONTIN [Suspect]
     Dosage: 600 MG, 4X/DAY
     Route: 048

REACTIONS (3)
  - Back disorder [Unknown]
  - Pain in extremity [Unknown]
  - Burning sensation [Unknown]
